FAERS Safety Report 7466031-2 (Version None)
Quarter: 2011Q2

REPORT INFORMATION
  Report Type: 
  Country: None (occurrence: None)
  Receive Date: 20110509
  Receipt Date: 20110426
  Transmission Date: 20111010
  Serious: Yes (Hospitalization)
  Sender: FDA-Public Use
  Company Number: JP-SANOFI-AVENTIS-2011SA025786

PATIENT
  Age: 75 Year
  Sex: Female

DRUGS (7)
  1. INSULIN [Suspect]
     Route: 065
     Dates: start: 20101001, end: 20101001
  2. PROTAMINE [Concomitant]
     Route: 065
  3. INSULIN [Suspect]
     Route: 065
     Dates: start: 20101001, end: 20101001
  4. INSULIN [Suspect]
     Indication: TYPE 1 DIABETES MELLITUS
     Dosage: BEFORE EACH MEAL
     Route: 065
     Dates: start: 20100901, end: 20100901
  5. GLIMEPIRIDE [Concomitant]
     Route: 065
  6. INSULIN [Suspect]
     Indication: TYPE 1 DIABETES MELLITUS
     Dosage: AT BED TIME
     Route: 065
     Dates: start: 20100901, end: 20101001
  7. INSULIN [Suspect]
     Dosage: BEFORE EACH MEAL
     Route: 065
     Dates: start: 20100901, end: 20101001

REACTIONS (3)
  - LIVER DISORDER [None]
  - ASPARTATE AMINOTRANSFERASE INCREASED [None]
  - ALANINE AMINOTRANSFERASE INCREASED [None]
